FAERS Safety Report 24303169 (Version 1)
Quarter: 2024Q3

REPORT INFORMATION
  Report Type: Spontaneous
  Country: US (occurrence: None)
  Receive Date: 20240909
  Receipt Date: 20240909
  Transmission Date: 20241017
  Serious: No
  Sender: Public
  Company Number: None

PATIENT
  Sex: Female

DRUGS (1)
  1. TREPROSTINIL [Suspect]
     Active Substance: TREPROSTINIL
     Indication: Pulmonary arterial hypertension
     Dosage: OTHER QUANTITY : 40NG/KG/MIN?OTHER FREQUENCY : CONTINUOUS?
     Route: 042
     Dates: start: 202404

REACTIONS (2)
  - Dizziness [None]
  - Diarrhoea [None]
